FAERS Safety Report 20931374 (Version 1)
Quarter: 2022Q2

REPORT INFORMATION
  Report Type: Spontaneous
  Country: US (occurrence: US)
  Receive Date: 20220608
  Receipt Date: 20220608
  Transmission Date: 20220720
  Serious: Yes (Hospitalization)
  Sender: FDA-Public Use
  Company Number: US-PERRIGO-22US008009

PATIENT
  Sex: Male

DRUGS (2)
  1. NICOTINE POLACRILEX [Suspect]
     Active Substance: NICOTINE
     Indication: Smoking cessation therapy
     Dosage: 1 TO 2 LOZENGES, BACK TO BACK
     Route: 002
     Dates: start: 2021
  2. NICOTINE POLACRILEX [Suspect]
     Active Substance: NICOTINE
     Indication: Smoking cessation therapy
     Dosage: 1 TO 2 LOZENGES, BACK TO BACK
     Route: 002
     Dates: start: 2018, end: 2021

REACTIONS (5)
  - Nicotine dependence [Not Recovered/Not Resolved]
  - Blood glucose increased [Unknown]
  - Flatulence [Unknown]
  - Overdose [Not Recovered/Not Resolved]
  - Wrong technique in product usage process [Not Recovered/Not Resolved]

NARRATIVE: CASE EVENT DATE: 20180101
